FAERS Safety Report 9845558 (Version 2)
Quarter: 2014Q1

REPORT INFORMATION
  Report Type: Spontaneous
  Country: US (occurrence: US)
  Receive Date: 20140127
  Receipt Date: 20140211
  Transmission Date: 20141002
  Serious: No
  Sender: FDA-Public Use
  Company Number: US-PFIZER INC-2014018819

PATIENT
  Age: 78 Year
  Sex: Female

DRUGS (11)
  1. SUTENT [Suspect]
     Indication: RENAL CANCER
     Dosage: 37.5 MG, DAILY
     Route: 048
     Dates: start: 20131026
  2. GARLIC [Concomitant]
     Dosage: UNK
  3. VITAMIN C [Concomitant]
     Dosage: UNK
  4. VITAMIN D [Concomitant]
     Dosage: UNK
  5. CITALOPRAM [Concomitant]
     Dosage: UNK
  6. PANTOPRAZOLE [Concomitant]
     Dosage: UNK
  7. LOSARTAN [Concomitant]
     Dosage: UNK
  8. LORAZEPAM [Concomitant]
     Dosage: UNK
  9. METOPROLOL [Concomitant]
     Dosage: UNK
  10. GABAPENTIN [Concomitant]
     Dosage: UNK
  11. HYDROCODONE [Concomitant]
     Dosage: UNK

REACTIONS (1)
  - Tongue blistering [Unknown]
